FAERS Safety Report 5276009-5 (Version None)
Quarter: 2007Q1

REPORT INFORMATION
  Report Type: 
  Country: None (occurrence: None)
  Receive Date: 20070326
  Receipt Date: 20061207
  Transmission Date: 20070707
  Serious: Yes (Death, Hospitalization)
  Sender: FDA-Public Use
  Company Number: AR-JNJFOC-20061003234

PATIENT
  Sex: Female
  Weight: 44 kg

DRUGS (19)
  1. TMC114 [Suspect]
     Route: 048
  2. TMC114 [Suspect]
     Indication: HIV INFECTION
     Route: 048
  3. RITONAVIR [Suspect]
     Indication: HIV INFECTION
     Route: 048
  4. CLARITHROMYCIN [Interacting]
     Indication: ANTIBIOTIC PROPHYLAXIS
     Route: 048
  5. CASPOFUNGIN [Suspect]
     Indication: CANDIDIASIS
     Route: 042
  6. CEFTRIAXONE [Suspect]
     Indication: PNEUMONIA
     Route: 042
  7. ETHAMBUTOL HYDROCHLORIDE [Suspect]
     Indication: ANTIBIOTIC PROPHYLAXIS
     Route: 048
  8. DIDANOSINE [Suspect]
     Indication: HIV INFECTION
     Route: 048
  9. CLONAZEPAM [Concomitant]
     Indication: INSOMNIA
     Route: 048
  10. LAMIVUDINE [Concomitant]
     Indication: HIV INFECTION
     Route: 048
  11. FUZEON [Concomitant]
     Indication: HIV INFECTION
     Route: 058
  12. VALACYCLOVIR [Concomitant]
     Indication: ANTIVIRAL PROPHYLAXIS
     Route: 048
  13. CIPROFLOXACIN [Concomitant]
     Indication: PNEUMONIA
     Route: 048
  14. OMEPRAZOLE [Concomitant]
     Indication: PROPHYLAXIS
     Route: 048
  15. FERRUM SULPHATE [Concomitant]
     Indication: NUTRITIONAL SUPPORT
     Route: 048
  16. LEUCOVORIN CALCIUM [Concomitant]
     Indication: NUTRITIONAL SUPPORT
     Route: 048
  17. FLUNITRAZEPAM [Concomitant]
     Indication: INSOMNIA
     Route: 048
  18. CLONAZEPAM [Concomitant]
     Route: 048
  19. ITRACONAZOLE [Concomitant]
     Route: 065

REACTIONS (5)
  - ANAEMIA [None]
  - DRUG INTERACTION [None]
  - HEPATIC FAILURE [None]
  - LYMPHOMA [None]
  - PNEUMONIA [None]
